FAERS Safety Report 25005900 (Version 1)
Quarter: 2025Q1

REPORT INFORMATION
  Report Type: Spontaneous
  Country: CN (occurrence: CN)
  Receive Date: 20250224
  Receipt Date: 20250224
  Transmission Date: 20250409
  Serious: Yes (Hospitalization, Other)
  Sender: ELI LILLY AND COMPANY
  Company Number: CN-ELI_LILLY_AND_COMPANY-CN202502010198

PATIENT
  Sex: Female

DRUGS (1)
  1. HUMALOG MIX75/25 [Suspect]
     Active Substance: INSULIN LISPRO
     Indication: Diabetes mellitus
     Route: 058
     Dates: start: 2021, end: 202412

REACTIONS (7)
  - Fall [Unknown]
  - Lumbar vertebral fracture [Unknown]
  - Internal injury [Unknown]
  - Abdominal pain [Unknown]
  - Vomiting [Unknown]
  - Haematuria [Unknown]
  - Feeding disorder [Unknown]

NARRATIVE: CASE EVENT DATE: 20241128
